FAERS Safety Report 4984447-0 (Version None)
Quarter: 2006Q2

REPORT INFORMATION
  Report Type: 
  Country: None (occurrence: None)
  Receive Date: 20060427
  Receipt Date: 20060113
  Transmission Date: 20061013
  Serious: Yes (Other)
  Sender: FDA-Public Use
  Company Number: GB-GLAXOSMITHKLINE-B0406643A

PATIENT
  Age: 48 Year
  Sex: Male
  Weight: 109 kg

DRUGS (5)
  1. AVANDIA [Suspect]
     Indication: DIABETES MELLITUS NON-INSULIN-DEPENDENT
     Route: 048
     Dates: start: 20021018
  2. VARDENAFIL [Concomitant]
     Indication: DIABETES MELLITUS NON-INSULIN-DEPENDENT
     Dosage: 20MG UNKNOWN
     Route: 048
     Dates: start: 20050603
  3. SIMVASTATIN [Concomitant]
     Indication: DIABETES MELLITUS NON-INSULIN-DEPENDENT
     Dosage: 20U UNKNOWN
     Route: 048
     Dates: start: 20060106
  4. ASPIRIN [Concomitant]
     Indication: DIABETES MELLITUS NON-INSULIN-DEPENDENT
     Dosage: 75U UNKNOWN
     Route: 048
     Dates: start: 20060106
  5. GLICLAZIDE [Concomitant]
     Indication: DIABETES MELLITUS NON-INSULIN-DEPENDENT
     Dosage: 80MG UNKNOWN
     Route: 048
     Dates: start: 19990101, end: 20041201

REACTIONS (5)
  - ABNORMAL SENSATION IN EYE [None]
  - EYE PAIN [None]
  - NIGHT BLINDNESS [None]
  - VISUAL ACUITY REDUCED [None]
  - VISUAL DISTURBANCE [None]
